FAERS Safety Report 5737626-9 (Version None)
Quarter: 2008Q2

REPORT INFORMATION
  Report Type: 
  Country: None (occurrence: None)
  Receive Date: 20080514
  Receipt Date: 20080508
  Transmission Date: 20081010
  Serious: Yes (Other)
  Sender: FDA-Public Use
  Company Number: US-ROCHE-537127

PATIENT
  Sex: Male

DRUGS (4)
  1. PEGASYS [Suspect]
     Route: 065
     Dates: start: 20070907, end: 20071201
  2. PEGASYS [Suspect]
     Route: 065
     Dates: start: 20080301
  3. RIBAVIRIN [Suspect]
     Dosage: FORM: PILL
     Route: 065
     Dates: start: 20070907, end: 20071214
  4. RIBAVIRIN [Suspect]
     Route: 065
     Dates: start: 20080301

REACTIONS (8)
  - ANAEMIA [None]
  - ASTHENIA [None]
  - CONFUSIONAL STATE [None]
  - CONGENITAL COAGULOPATHY [None]
  - DELIRIUM [None]
  - DISTURBANCE IN ATTENTION [None]
  - HAEMORRHAGE [None]
  - RASH [None]
